FAERS Safety Report 13869924 (Version 2)
Quarter: 2017Q3

REPORT INFORMATION
  Report Type: Report from Study
  Country: JP (occurrence: JP)
  Receive Date: 20170815
  Receipt Date: 20170926
  Transmission Date: 20171127
  Serious: Yes (Hospitalization, Other)
  Sender: FDA-Public Use
  Company Number: JP-EISAI MEDICAL RESEARCH-EC-2016-014583

PATIENT
  Age: 77 Year
  Sex: Female
  Weight: 45 kg

DRUGS (13)
  1. LENVIMA [Suspect]
     Active Substance: LENVATINIB
     Route: 048
     Dates: start: 20151203, end: 20160225
  2. ADALAT CC [Concomitant]
     Active Substance: NIFEDIPINE
  3. LENVIMA [Suspect]
     Active Substance: LENVATINIB
     Indication: PAPILLARY THYROID CANCER
     Route: 048
     Dates: start: 20150526, end: 20150608
  4. LENVIMA [Suspect]
     Active Substance: LENVATINIB
     Route: 048
     Dates: start: 20160401, end: 20160526
  5. PARIET [Concomitant]
     Active Substance: RABEPRAZOLE SODIUM
  6. FENTOS [Suspect]
     Active Substance: FENTANYL
     Indication: ANALGESIC THERAPY
     Dosage: UNKNOWN
     Route: 048
  7. LEVOTHYROXINE SODIUM. [Concomitant]
     Active Substance: LEVOTHYROXINE SODIUM
  8. AZILVA [Concomitant]
     Active Substance: AZILSARTAN KAMEDOXOMIL
  9. LENVIMA [Suspect]
     Active Substance: LENVATINIB
     Route: 048
     Dates: start: 20150617, end: 20150630
  10. NU-LOTAN [Concomitant]
     Active Substance: LOSARTAN POTASSIUM
  11. LENVIMA [Suspect]
     Active Substance: LENVATINIB
     Route: 048
     Dates: start: 20150924, end: 20151111
  12. LENVIMA [Suspect]
     Active Substance: LENVATINIB
     Route: 048
     Dates: start: 20160325, end: 20160331
  13. CALFINA [Concomitant]
     Active Substance: ALFACALCIDOL

REACTIONS (2)
  - Delirium [Recovering/Resolving]
  - Pneumonia aspiration [Not Recovered/Not Resolved]

NARRATIVE: CASE EVENT DATE: 20160205
